FAERS Safety Report 9633951 (Version 2)
Quarter: 2013Q4

REPORT INFORMATION
  Report Type: Spontaneous
  Country: US (occurrence: US)
  Receive Date: 20131021
  Receipt Date: 20131105
  Transmission Date: 20140711
  Serious: Yes (Other)
  Sender: FDA-Public Use
  Company Number: US-PFIZER INC-2013297798

PATIENT
  Age: 80 Year
  Sex: Female
  Weight: 48.98 kg

DRUGS (6)
  1. NEURONTIN [Suspect]
     Indication: SCIATICA
     Dosage: 100 MG, 3X/DAY
     Route: 048
     Dates: start: 201309, end: 2013
  2. NEURONTIN [Suspect]
     Indication: SCIATICA
     Dosage: 600 MG, 2X/DAY
     Route: 048
     Dates: start: 20131010, end: 20131015
  3. GLUCOPHAGE [Concomitant]
     Indication: DIABETES MELLITUS
     Dosage: UNK
  4. MAXZIDE [Concomitant]
     Indication: HYPERTENSION
     Dosage: UNK
  5. CYMBALTA [Concomitant]
     Dosage: UNK, 1X/DAY (IN THE EVENING)
  6. LIPITOR [Concomitant]

REACTIONS (5)
  - Off label use [Unknown]
  - Drug dose omission [Unknown]
  - Loss of consciousness [Recovered/Resolved]
  - Asthenia [Unknown]
  - Drug ineffective for unapproved indication [Unknown]
